FAERS Safety Report 14552943 (Version 1)
Quarter: 2018Q1

REPORT INFORMATION
  Report Type: Spontaneous
  Country: US (occurrence: US)
  Receive Date: 20180216
  Receipt Date: 20180216
  Transmission Date: 20180509
  Serious: Yes (Hospitalization)
  Sender: FDA-Public Use
  Company Number: None

PATIENT
  Age: 65 Year
  Sex: Male

DRUGS (7)
  1. XOLAIR [Suspect]
     Active Substance: OMALIZUMAB
     Indication: ASTHMA
     Route: 058
     Dates: start: 20160120
  2. LORATADINE. [Concomitant]
     Active Substance: LORATADINE
  3. DIVALPROEX [Concomitant]
     Active Substance: DIVALPROEX SODIUM
  4. TESTOS CYP [Concomitant]
  5. FLUTICASONE. [Concomitant]
     Active Substance: FLUTICASONE
  6. TRAMADOL. [Concomitant]
     Active Substance: TRAMADOL
  7. ATORVASTATIN [Concomitant]
     Active Substance: ATORVASTATIN

REACTIONS (1)
  - Ileus paralytic [None]

NARRATIVE: CASE EVENT DATE: 20180118
